FAERS Safety Report 13824703 (Version 1)
Quarter: 2017Q3

REPORT INFORMATION
  Report Type: Spontaneous
  Country: US (occurrence: US)
  Receive Date: 20170802
  Receipt Date: 20170802
  Transmission Date: 20171127
  Serious: No
  Sender: FDA-Public Use
  Company Number: US-SHIRE-US201713895

PATIENT

DRUGS (2)
  1. XIIDRA [Suspect]
     Active Substance: LIFITEGRAST
     Indication: DRY EYE
     Dosage: 1 GTT, 1X/DAY:QD, DAILY NIGHT
     Route: 047
     Dates: start: 201612
  2. RESTASIS [Concomitant]
     Active Substance: CYCLOSPORINE
     Indication: PRODUCT USED FOR UNKNOWN INDICATION
     Dosage: UNK
     Route: 047

REACTIONS (6)
  - Instillation site reaction [Unknown]
  - Instillation site inflammation [Unknown]
  - Drug ineffective [Unknown]
  - Instillation site pruritus [Unknown]
  - Erythema [Unknown]
  - Rash erythematous [Unknown]
